FAERS Safety Report 19069003 (Version 5)
Quarter: 2021Q3

REPORT INFORMATION
  Report Type: Report from Study
  Country: US (occurrence: US)
  Receive Date: 20210329
  Receipt Date: 20210906
  Transmission Date: 20211014
  Serious: Yes (Disabling)
  Sender: FDA-Public Use
  Company Number: US-SA-2021SA099949

PATIENT
  Age: 42 Year
  Sex: Female

DRUGS (4)
  1. DUPILUMAB [Suspect]
     Active Substance: DUPILUMAB
     Dosage: 200 MG, QOW
     Route: 058
     Dates: start: 201906
  2. DUPILUMAB [Suspect]
     Active Substance: DUPILUMAB
     Dosage: 200 MG, QOW
     Route: 058
     Dates: start: 20201016
  3. PROAIR HFA [Concomitant]
     Active Substance: ALBUTEROL SULFATE
     Dosage: UNK
  4. DUPILUMAB [Suspect]
     Active Substance: DUPILUMAB
     Indication: ASTHMA
     Dosage: 400 MG, 1X
     Route: 058
     Dates: start: 20190607, end: 20190607

REACTIONS (16)
  - Product storage error [Unknown]
  - Condition aggravated [Not Recovered/Not Resolved]
  - SARS-CoV-2 test positive [Recovering/Resolving]
  - Injection site pruritus [Not Recovered/Not Resolved]
  - Fear of injection [Not Recovered/Not Resolved]
  - Injection site exfoliation [Not Recovered/Not Resolved]
  - Injection site rash [Not Recovered/Not Resolved]
  - Chemical burn of skin [Not Recovered/Not Resolved]
  - COVID-19 [Recovering/Resolving]
  - Anxiety [Not Recovered/Not Resolved]
  - Injection site pain [Not Recovered/Not Resolved]
  - Injection site inflammation [Not Recovered/Not Resolved]
  - Injection site erythema [Not Recovered/Not Resolved]
  - Impaired work ability [Not Recovered/Not Resolved]
  - Dyspnoea [Recovering/Resolving]
  - Lack of administration site rotation [Unknown]

NARRATIVE: CASE EVENT DATE: 202102
